FAERS Safety Report 14192121 (Version 1)
Quarter: 2017Q4

REPORT INFORMATION
  Report Type: Report from Study
  Country: US (occurrence: US)
  Receive Date: 20171115
  Receipt Date: 20171115
  Transmission Date: 20180321
  Serious: Yes (Other)
  Sender: FDA-Public Use
  Company Number: US-CIPLA LTD.-2017US20421

PATIENT

DRUGS (2)
  1. IRINOTECAN [Suspect]
     Active Substance: IRINOTECAN
     Indication: NEOPLASM
     Dosage: 180 MG/M2, ON DAYS 1 AND 15 OF EACH 28-DAY CYCLE
     Route: 042
  2. GEDATOLISIB [Suspect]
     Active Substance: GEDATOLISIB
     Indication: NEOPLASM
     Dosage: UNK, WEEKLY ON DAYS 2, 9, 16 AND 23 OF EACH 28-DAY CYCLE
     Route: 042

REACTIONS (5)
  - Escherichia bacteraemia [Unknown]
  - Hyperglycaemia [Unknown]
  - Leukopenia [Unknown]
  - Pyrexia [Unknown]
  - Anaemia [Unknown]
